FAERS Safety Report 14393412 (Version 1)
Quarter: 2018Q1

REPORT INFORMATION
  Report Type: Report from Study
  Country: MY (occurrence: MY)
  Receive Date: 20180116
  Receipt Date: 20180116
  Transmission Date: 20180509
  Serious: Yes (Hospitalization)
  Sender: FDA-Public Use
  Company Number: MY-SEATTLE GENETICS-2017SGN03129

PATIENT
  Age: 56 Year
  Sex: Female

DRUGS (1)
  1. BRENTUXIMAB VEDOTIN [Suspect]
     Active Substance: BRENTUXIMAB VEDOTIN
     Indication: HODGKIN^S DISEASE REFRACTORY
     Dosage: 50 MG, UNK
     Route: 042
     Dates: start: 20171204

REACTIONS (2)
  - Pyrexia [Unknown]
  - Eye infection [Recovering/Resolving]

NARRATIVE: CASE EVENT DATE: 20171205
